FAERS Safety Report 8870072 (Version 1)
Quarter: 2012Q4

REPORT INFORMATION
  Report Type: 
  Country: US (occurrence: US)
  Receive Date: 20121026
  Receipt Date: 20121026
  Transmission Date: 20130627
  Serious: No
  Sender: FDA-Public Use
  Company Number: US-AMGEN-USASP2012043758

PATIENT
  Sex: Female
  Weight: 96.6 kg

DRUGS (6)
  1. ENBREL [Suspect]
     Indication: PRODUCT USED FOR UNKNOWN INDICATION
     Dosage: 50 mg, qwk
  2. METHOTREXATE [Concomitant]
     Dosage: 2.5 mg, UNK
  3. OMEPRAZOLE [Concomitant]
     Dosage: 20 mg, UNK
  4. FOLIC ACID [Concomitant]
     Dosage: 1 mg, UNK
  5. LEVOTHYROXINE [Concomitant]
     Dosage: 100 mug, UNK
  6. SULINDAC [Concomitant]
     Dosage: 150 mg, UNK

REACTIONS (2)
  - Pain [Unknown]
  - Weight increased [Unknown]
